FAERS Safety Report 19940882 (Version 2)
Quarter: 2021Q4

REPORT INFORMATION
  Report Type: Spontaneous
  Country: US (occurrence: US)
  Receive Date: 20211011
  Receipt Date: 20211022
  Transmission Date: 20220303
  Serious: Yes (Other)
  Sender: FDA-Public Use
  Company Number: US-ROCHE-2928752

PATIENT
  Age: 41 Year
  Sex: Female
  Weight: 72 kg

DRUGS (32)
  1. HERCEPTIN [Suspect]
     Active Substance: TRASTUZUMAB
     Indication: Breast cancer
     Dosage: 17 CYCLES COMPLETED
     Route: 065
     Dates: start: 20090414, end: 20100619
  2. HERCEPTIN [Suspect]
     Active Substance: TRASTUZUMAB
     Dosage: HERCEPTIN 440 MG REPEATED, 1ST CYCLE
     Route: 065
     Dates: start: 20130515
  3. HERCEPTIN [Suspect]
     Active Substance: TRASTUZUMAB
     Dosage: 8 MG/KG  WEIGHT 72 KGS 59 CYCLES COMPLETED ON 04 OCT 2016
     Route: 065
     Dates: end: 20161004
  4. HERCEPTIN [Suspect]
     Active Substance: TRASTUZUMAB
     Dosage: TOTAL 7 CYCLES
     Route: 065
     Dates: start: 20200222, end: 20200624
  5. KADCYLA [Suspect]
     Active Substance: ADO-TRASTUZUMAB EMTANSINE
     Indication: Breast cancer
     Dosage: TOTAL 18 CYCLES COMPLETED
     Route: 042
     Dates: start: 20161102, end: 20171111
  6. XELODA [Suspect]
     Active Substance: CAPECITABINE
     Indication: Breast cancer metastatic
     Dosage: (21 DAYS IN A MONTH) TOTAL 9 CYCLES COMPLETED
     Route: 048
     Dates: start: 20190122, end: 20191031
  7. XELODA [Suspect]
     Active Substance: CAPECITABINE
     Route: 048
     Dates: start: 20210703
  8. XELODA [Suspect]
     Active Substance: CAPECITABINE
     Route: 048
     Dates: start: 20210724
  9. PERJETA [Suspect]
     Active Substance: PERTUZUMAB
     Indication: Breast cancer metastatic
     Dosage: 1ST CYCLE
     Route: 042
     Dates: start: 20200831, end: 20200831
  10. PERJETA [Suspect]
     Active Substance: PERTUZUMAB
     Dosage: 2ND CYCLE 3RD CYCLE
     Route: 042
     Dates: start: 20200921, end: 20201017
  11. ADRIAMYCIN [Concomitant]
     Active Substance: DOXORUBICIN HYDROCHLORIDE
     Dosage: 4 CYCLES (EVERY 3 WEEKS INJ.)
     Dates: start: 20090414
  12. CYCLOPHOSPHAMIDE [Concomitant]
     Active Substance: CYCLOPHOSPHAMIDE
     Dosage: 4 CYCLES EVERY 3 WEEKS INJ.
     Dates: start: 20090414
  13. TAXOL [Concomitant]
     Active Substance: PACLITAXEL
     Dosage: TAXOL 300MG WITH HERCEPTIN 440MG 1ST CYCLE STARTED(TOTAL 17)
     Dates: start: 20090414
  14. TAMOXIFEN [Concomitant]
     Active Substance: TAMOXIFEN
     Dosage: TWICE DAILY STARTED(10.10.09 TO 28.02.2013)
     Route: 048
     Dates: start: 20091010, end: 20130228
  15. ZOMETA [Concomitant]
     Active Substance: ZOLEDRONIC ACID
     Dosage: TOTAL 59 CYCLES COMPLETED ON 04 OCT.2016
     Dates: start: 20130515, end: 20161004
  16. ZOMETA [Concomitant]
     Active Substance: ZOLEDRONIC ACID
     Dates: start: 20171209
  17. ZOMETA [Concomitant]
     Active Substance: ZOLEDRONIC ACID
     Dosage: TOTAL 13 CYCLES
     Dates: start: 20180310, end: 20180904
  18. ZOMETA [Concomitant]
     Active Substance: ZOLEDRONIC ACID
     Dates: end: 20200121
  19. EXEMESTANE [Concomitant]
     Active Substance: EXEMESTANE
     Dosage: ONCE DAILY
     Route: 048
     Dates: start: 20130515, end: 20161101
  20. TRASTUZUMAB [Concomitant]
     Active Substance: TRASTUZUMAB
     Dates: start: 20171209
  21. TRASTUZUMAB [Concomitant]
     Active Substance: TRASTUZUMAB
     Dosage: TOTAL 13 CYCLES
     Dates: start: 20180310, end: 20180904
  22. TRASTUZUMAB [Concomitant]
     Active Substance: TRASTUZUMAB
     Dates: start: 20191108, end: 20200120
  23. TRASTUZUMAB [Concomitant]
     Active Substance: TRASTUZUMAB
     Dates: start: 20200831, end: 20200921
  24. TRASTUZUMAB [Concomitant]
     Active Substance: TRASTUZUMAB
     Dates: start: 20210703
  25. GEMCITABINE [Concomitant]
     Active Substance: GEMCITABINE
     Dosage: WEEKLY ONCE TOTAL 4
     Dates: start: 20171209, end: 20180109
  26. VINORELBINE TARTRATE [Concomitant]
     Active Substance: VINORELBINE TARTRATE
     Dosage: TOTAL 13 CYCLES
     Dates: start: 20180310, end: 20180904
  27. FULVESTRANT [Concomitant]
     Active Substance: FULVESTRANT
     Dosage: 3 CYCLES
     Dates: start: 20181001, end: 20181101
  28. ERIBULIN [Concomitant]
     Active Substance: ERIBULIN
     Dosage: 1ST DAY
     Dates: start: 20191108, end: 20200120
  29. ERIBULIN [Concomitant]
     Active Substance: ERIBULIN
     Dates: end: 20200120
  30. TAXOTERE [Concomitant]
     Active Substance: DOCETAXEL
     Dates: start: 20200926, end: 20201017
  31. TUCATINIB [Concomitant]
     Active Substance: TUCATINIB
     Route: 048
     Dates: start: 20210718
  32. TUKYSA [Concomitant]
     Active Substance: TUCATINIB
     Dates: start: 20210718

REACTIONS (22)
  - Chest pain [Unknown]
  - Swelling [Unknown]
  - Bone lesion [Unknown]
  - Hysterectomy [Unknown]
  - Fibula fracture [Unknown]
  - Tibia fracture [Unknown]
  - Spinal osteoarthritis [Unknown]
  - Spinal osteoarthritis [Unknown]
  - Hepatic cancer [Unknown]
  - Lymphadenopathy [Unknown]
  - Skin cancer metastatic [Unknown]
  - Breast oedema [Unknown]
  - Vertigo [Unknown]
  - Pleural effusion [Unknown]
  - Metastatic neoplasm [Unknown]
  - Aspiration pleural cavity [Unknown]
  - Lung neoplasm [Unknown]
  - Pleural neoplasm [Unknown]
  - Bone neoplasm [Unknown]
  - Lymphadenopathy mediastinal [Unknown]
  - Lymphadenopathy [Unknown]
  - Ill-defined disorder [Unknown]

NARRATIVE: CASE EVENT DATE: 20130301
